FAERS Safety Report 18293932 (Version 4)
Quarter: 2021Q4

REPORT INFORMATION
  Report Type: Other
  Country: US (occurrence: US)
  Receive Date: 20200921
  Receipt Date: 20211221
  Transmission Date: 20220303
  Serious: No
  Sender: FDA-Public Use
  Company Number: US-ACORDA-ACO_165407_2020

PATIENT
  Sex: Male
  Weight: 108.84 kg

DRUGS (6)
  1. INBRIJA [Suspect]
     Active Substance: LEVODOPA
     Indication: Parkinson^s disease
     Dosage: 84 MILLIGRAM, PRN. NOT TO EXCEED 5 DOSES A DAY
     Dates: start: 20200515
  2. INBRIJA [Suspect]
     Active Substance: LEVODOPA
     Indication: On and off phenomenon
  3. GOCOVRI [Suspect]
     Active Substance: AMANTADINE
     Indication: Product used for unknown indication
     Dosage: UNK
     Route: 065
  4. RYTARY [Concomitant]
     Active Substance: CARBIDOPA\LEVODOPA
     Indication: Product used for unknown indication
     Dosage: 23/75/95: 3 OR 4 PILLS EVERY 5 HOURS (ALSO REPORTED AS: 23/75/92: 4 PILLS Q  6-6.5 HOURS
     Route: 065
  5. NEUPRO [Concomitant]
     Active Substance: ROTIGOTINE
     Indication: Product used for unknown indication
     Dosage: 8 MG, 1 PATCH EVERY 24 HOURS
     Route: 065
  6. RASAGILINE [Concomitant]
     Active Substance: RASAGILINE
     Indication: Product used for unknown indication
     Dosage: 1 PILL IN THE MORNING (ALSO REPORTED AS 1MG QD)
     Route: 065

REACTIONS (16)
  - Device issue [Unknown]
  - Incorrect dose administered by device [Unknown]
  - Wrong technique in product usage process [Unknown]
  - Product physical issue [Unknown]
  - Nasal congestion [Unknown]
  - Therapeutic product effect variable [Unknown]
  - Drug intolerance [Unknown]
  - Parkinson^s disease [Not Recovered/Not Resolved]
  - Device issue [Unknown]
  - Incorrect dose administered by device [Unknown]
  - Therapeutic product effect incomplete [Unknown]
  - Device occlusion [Unknown]
  - Cough [Unknown]
  - Cough [Recovered/Resolved]
  - Therapeutic product effect variable [Unknown]
  - Wrong technique in product usage process [Unknown]
